FAERS Safety Report 18701374 (Version 14)
Quarter: 2021Q3

REPORT INFORMATION
  Report Type: Report from Study
  Country: CN (occurrence: CN)
  Receive Date: 20210105
  Receipt Date: 20210916
  Transmission Date: 20211014
  Serious: Yes (Life-Threatening, Hospitalization)
  Sender: FDA-Public Use
  Company Number: CN-ROCHE-2742887

PATIENT
  Age: 56 Year
  Sex: Male
  Weight: 65 kg

DRUGS (97)
  1. ETOPOSIDE. [Suspect]
     Active Substance: ETOPOSIDE
     Indication: SMALL CELL LUNG CANCER EXTENSIVE STAGE
     Dosage: DATE OF MOST RECENT DOSE OF ETOPOSIDE PRIOR TO SAE/AESI ONSET ON 27/DEC/2020 (120 MG)?DATE OF MOST R
     Route: 042
     Dates: start: 20201225
  2. POLYENE PHOSPHATIDYLCHOLINE [Concomitant]
     Active Substance: PHOSPHOLIPID
     Dates: start: 20201229, end: 20210103
  3. SODIUM BICARBONATE. [Concomitant]
     Active Substance: SODIUM BICARBONATE
     Dates: start: 20210320, end: 20210322
  4. TROPISETRON HYDROCHLORIDE [Concomitant]
     Active Substance: TROPISETRON HYDROCHLORIDE
     Dates: start: 20201225, end: 20201228
  5. TROPISETRON HYDROCHLORIDE [Concomitant]
     Active Substance: TROPISETRON HYDROCHLORIDE
     Dates: start: 20210220, end: 20210223
  6. INSULIN [Concomitant]
     Active Substance: INSULIN NOS
  7. MEDIUM AND LONG CHAIN FAT EMULSION INJECTION [Concomitant]
     Active Substance: LIPOSYN (R) INTRAVENOUS FAT EMULSION
  8. CONCENTRATED SODIUM CHLORIDE [Concomitant]
     Active Substance: SODIUM CHLORIDE
  9. PROPOFOL. [Concomitant]
     Active Substance: PROPOFOL
     Dates: start: 20210308, end: 20210308
  10. GLUCOSE AND SODIUM CHLORIDE [Concomitant]
     Active Substance: DEXTROSE\SODIUM CHLORIDE
     Dates: start: 20210310, end: 20210310
  11. RACEANISODAMINE HYDROCHLORIDE [Concomitant]
     Dates: start: 20210311, end: 20210311
  12. NYSTATIN. [Concomitant]
     Active Substance: NYSTATIN
     Dosage: 20 TABLETS
     Dates: start: 20210318, end: 20210318
  13. METHYLPREDNISOLONE. [Concomitant]
     Active Substance: METHYLPREDNISOLONE
     Dates: start: 20210627, end: 20210629
  14. METHYLPREDNISOLONE. [Concomitant]
     Active Substance: METHYLPREDNISOLONE
     Dates: start: 20210715, end: 20210717
  15. ACETYLCYSTEINE. [Concomitant]
     Active Substance: ACETYLCYSTEINE
     Dates: start: 20210521, end: 20210601
  16. MOSAPRIDE CITRATE [Concomitant]
     Active Substance: MOSAPRIDE CITRATE
     Dates: start: 20210615, end: 20210615
  17. ATEZOLIZUMAB. [Suspect]
     Active Substance: ATEZOLIZUMAB
     Indication: SMALL CELL LUNG CANCER EXTENSIVE STAGE
     Dosage: DATE OF MOST RECENT DOSE OF ATEZOLIZUMAB PRIOR TO SAE/AESI/SPECIAL SITUATION ON 20/FEB/2021.
     Route: 041
     Dates: start: 20201225
  18. CODEINE PHOSPHATE [Concomitant]
     Active Substance: CODEINE PHOSPHATE
     Dates: start: 20210320, end: 20210322
  19. AMBROXOL HYDROCHLORIDE [Concomitant]
     Active Substance: AMBROXOL HYDROCHLORIDE
     Dates: start: 20201215, end: 20210104
  20. AMBROXOL HYDROCHLORIDE [Concomitant]
     Active Substance: AMBROXOL HYDROCHLORIDE
     Dates: start: 20210323, end: 20210323
  21. ALLOPURINOL. [Concomitant]
     Active Substance: ALLOPURINOL
     Dates: start: 20201217
  22. SODIUM BICARBONATE. [Concomitant]
     Active Substance: SODIUM BICARBONATE
     Dates: start: 20201225, end: 20210104
  23. VITAMIN B6 [Concomitant]
     Active Substance: PYRIDOXINE HYDROCHLORIDE
     Dates: start: 20210301, end: 20210302
  24. LINEZOLID. [Concomitant]
     Active Substance: LINEZOLID
     Dates: start: 20210301, end: 20210302
  25. POTASSIUM CHLORIDE. [Concomitant]
     Active Substance: POTASSIUM CHLORIDE
     Dates: start: 20210306, end: 20210323
  26. AMBROXOL HYDROCHLORIDE [Concomitant]
     Active Substance: AMBROXOL HYDROCHLORIDE
  27. METHYLPREDNISOLONE. [Concomitant]
     Active Substance: METHYLPREDNISOLONE
     Dates: start: 20210630
  28. METHYLPREDNISOLONE. [Concomitant]
     Active Substance: METHYLPREDNISOLONE
     Dosage: ONCE PER DAY
     Dates: start: 20210603, end: 20210605
  29. METHYLPREDNISOLONE. [Concomitant]
     Active Substance: METHYLPREDNISOLONE
     Dates: start: 20210712, end: 20210714
  30. AMBROXOL HYDROCHLORIDE [Concomitant]
     Active Substance: AMBROXOL HYDROCHLORIDE
     Dates: start: 20210521, end: 20210527
  31. ALLOPURINOL. [Concomitant]
     Active Substance: ALLOPURINOL
     Dates: start: 20210319, end: 20210323
  32. TRANEXAMIC ACID. [Concomitant]
     Active Substance: TRANEXAMIC ACID
  33. CIMETIDINE [Concomitant]
     Active Substance: CIMETIDINE
     Dates: start: 20210310, end: 20210322
  34. GLUCOSE [Concomitant]
     Active Substance: DEXTROSE
     Dates: start: 20210318, end: 20210318
  35. MAGNESIUM SULFATE. [Concomitant]
     Active Substance: MAGNESIUM SULFATE
     Dates: start: 20210306, end: 20210323
  36. CALCIUM GLUCONATE. [Concomitant]
     Active Substance: CALCIUM GLUCONATE
     Dates: start: 20210319, end: 20210319
  37. FLUCONAZOLE AND SODIUM CHLORIDE [Concomitant]
     Active Substance: FLUCONAZOLE
     Dates: start: 20210319, end: 20210323
  38. METHYLPREDNISOLONE. [Concomitant]
     Active Substance: METHYLPREDNISOLONE
     Dosage: ONCE PER DAY
     Dates: start: 20210706, end: 20210708
  39. MONTMORILLONITE [Concomitant]
     Active Substance: MONTMORILLONITE
     Dates: start: 20210611, end: 20210613
  40. CODEINE PHOSPHATE [Concomitant]
     Active Substance: CODEINE PHOSPHATE
     Route: 048
     Dates: start: 20201228, end: 20210104
  41. CODEINE PHOSPHATE [Concomitant]
     Active Substance: CODEINE PHOSPHATE
     Route: 048
     Dates: start: 20210104
  42. ALLOPURINOL. [Concomitant]
     Active Substance: ALLOPURINOL
     Dates: start: 20210320, end: 20210322
  43. SODIUM BICARBONATE. [Concomitant]
     Active Substance: SODIUM BICARBONATE
     Dates: start: 20201218
  44. RECOMBINANT HUMAN GRANULOCYTE STIMULATING FACTOR (UNK INGREDIENTS) [Concomitant]
     Dates: start: 20210305, end: 20210307
  45. CEFUROXIME SODIUM. [Concomitant]
     Active Substance: CEFUROXIME SODIUM
  46. FAMOTIDINE. [Concomitant]
     Active Substance: FAMOTIDINE
     Dates: start: 20201225, end: 20201228
  47. FAT EMULSION, AMINO ACIDS (17) AND GLUCOSE (11%) [Concomitant]
     Dates: start: 20210305, end: 20210305
  48. SODIUM GLYCEROPHOSPHATE [Concomitant]
     Active Substance: SODIUM GLYCEROPHOSPHATE
     Dates: start: 20210306, end: 20210323
  49. COD LIVER OIL [Concomitant]
     Active Substance: COD LIVER OIL
     Dosage: 3 OTHER
     Dates: start: 20210307, end: 20210323
  50. MIDAZOLAM. [Concomitant]
     Active Substance: MIDAZOLAM
     Dates: start: 20210308, end: 20210308
  51. ATROPINE SULFATE. [Concomitant]
     Active Substance: ATROPINE SULFATE
     Dates: start: 20210308, end: 20210308
  52. SUFENTANIL CITRATE. [Concomitant]
     Active Substance: SUFENTANIL CITRATE
     Dates: start: 20210308, end: 20210308
  53. METHYLPREDNISOLONE. [Concomitant]
     Active Substance: METHYLPREDNISOLONE
     Dates: start: 20210718, end: 20210720
  54. METHYLPREDNISOLONE. [Concomitant]
     Active Substance: METHYLPREDNISOLONE
     Dates: start: 20210815, end: 20210825
  55. CALCIUM GLUCONATE. [Concomitant]
     Active Substance: CALCIUM GLUCONATE
     Dates: start: 20210306, end: 20210323
  56. METHYLPREDNISOLONE. [Concomitant]
     Active Substance: METHYLPREDNISOLONE
     Dates: start: 20210618, end: 20210620
  57. METHYLPREDNISOLONE. [Concomitant]
     Active Substance: METHYLPREDNISOLONE
     Dates: start: 20210624, end: 20210626
  58. METHYLPREDNISOLONE. [Concomitant]
     Active Substance: METHYLPREDNISOLONE
     Dates: start: 20210826, end: 20210902
  59. CISPLATIN. [Suspect]
     Active Substance: CISPLATIN
     Indication: SMALL CELL LUNG CANCER EXTENSIVE STAGE
     Dosage: DATE OF MOST RECENT DOSE OF CISPLATIN (120 MG) PRIOR TO SAE/AESI ONSET 27/DEC/2020.?DATE OF MOST REC
     Route: 042
     Dates: start: 20201225
  60. CODEINE PHOSPHATE [Concomitant]
     Active Substance: CODEINE PHOSPHATE
     Route: 048
     Dates: start: 20201230, end: 20201230
  61. TRAMADOL HYDROCHLORIDE. [Concomitant]
     Active Substance: TRAMADOL HYDROCHLORIDE
     Dates: start: 202011, end: 202012
  62. AMBROXOL HYDROCHLORIDE [Concomitant]
     Active Substance: AMBROXOL HYDROCHLORIDE
     Dates: start: 20210320, end: 20210322
  63. VITAMIN B6 [Concomitant]
     Active Substance: PYRIDOXINE HYDROCHLORIDE
     Dosage: 10 MG
     Dates: start: 20201220, end: 20201223
  64. RECOMBINANT HUMAN GRANULOCYTE STIMULATING FACTOR (UNK INGREDIENTS) [Concomitant]
     Dates: start: 20210223, end: 20210224
  65. OXYCODONE HYDROCHLORIDE. [Concomitant]
     Active Substance: OXYCODONE HYDROCHLORIDE
     Dates: start: 20210220, end: 20210223
  66. CIMETIDINE [Concomitant]
     Active Substance: CIMETIDINE
     Dates: start: 20210323, end: 20210323
  67. POTASSIUM CHLORIDE. [Concomitant]
     Active Substance: POTASSIUM CHLORIDE
     Dates: start: 20210304, end: 20210305
  68. VITAMIN C [Concomitant]
     Active Substance: ASCORBIC ACID
     Dates: start: 20210304, end: 20210304
  69. SODIUM CHLORIDE. [Concomitant]
     Active Substance: SODIUM CHLORIDE
     Dates: start: 20210301, end: 20210302
  70. SODIUM CHLORIDE. [Concomitant]
     Active Substance: SODIUM CHLORIDE
     Dates: start: 20210305, end: 20210305
  71. NYSTATIN. [Concomitant]
     Active Substance: NYSTATIN
     Dosage: 40 TABLTS
     Dates: start: 20210322, end: 20210322
  72. SODIUM POTASSIUM MAGNESIUM CALCIUM AND GLUCOSE [Concomitant]
     Dates: start: 20210303, end: 20210303
  73. METHYLPREDNISOLONE. [Concomitant]
     Active Substance: METHYLPREDNISOLONE
     Dates: start: 20210802, end: 20210807
  74. PIPERACILLIN AND TAZOBACTAM [Concomitant]
     Active Substance: PIPERACILLIN SODIUM\TAZOBACTAM SODIUM
     Dates: start: 20210520, end: 20210530
  75. METHYLPREDNISOLONE SODIUM SUCCINATE. [Concomitant]
     Active Substance: METHYLPREDNISOLONE SODIUM SUCCINATE
     Dates: start: 20210613, end: 20210617
  76. CODEINE PHOSPHATE [Concomitant]
     Active Substance: CODEINE PHOSPHATE
     Route: 048
     Dates: start: 20201224, end: 20201228
  77. CIMETIDINE [Concomitant]
     Active Substance: CIMETIDINE
     Dates: start: 20210308, end: 20210309
  78. SODIUM CHLORIDE. [Concomitant]
     Active Substance: SODIUM CHLORIDE
     Dates: start: 20210308, end: 20210308
  79. METHYLPREDNISOLONE. [Concomitant]
     Active Substance: METHYLPREDNISOLONE
     Dates: start: 20210621, end: 20210623
  80. METHYLPREDNISOLONE. [Concomitant]
     Active Substance: METHYLPREDNISOLONE
     Dates: start: 20210709, end: 20210711
  81. METHYLPREDNISOLONE. [Concomitant]
     Active Substance: METHYLPREDNISOLONE
     Dates: start: 20210808, end: 20210814
  82. COMPOUND AMINOPHENAZONE AND BARBITAL [Concomitant]
     Dates: start: 20210521, end: 20210521
  83. MONTMORILLONITE [Concomitant]
     Active Substance: MONTMORILLONITE
     Dates: start: 20210609, end: 20210609
  84. OMEPRAZOLE. [Concomitant]
     Active Substance: OMEPRAZOLE
     Dosage: ONCE PER DAY
     Dates: start: 20210611, end: 20210611
  85. CODEINE PHOSPHATE [Concomitant]
     Active Substance: CODEINE PHOSPHATE
     Dosage: TOTAL DAILY DOSE:
     Route: 048
     Dates: start: 20201218
  86. CODEINE PHOSPHATE [Concomitant]
     Active Substance: CODEINE PHOSPHATE
     Dates: start: 20210319, end: 20210323
  87. BIFENDATE [Concomitant]
     Active Substance: BIFENDATE
     Dates: start: 20201229
  88. SODIUM BICARBONATE. [Concomitant]
     Active Substance: SODIUM BICARBONATE
     Dates: start: 20210319, end: 20210323
  89. TROPISETRON HYDROCHLORIDE [Concomitant]
     Active Substance: TROPISETRON HYDROCHLORIDE
     Dates: start: 20201220, end: 20201223
  90. RECOMBINANT HUMAN GRANULOCYTE STIMULATING FACTOR (UNK INGREDIENTS) [Concomitant]
     Dates: start: 20201223, end: 20201224
  91. LEVOFLOXACIN;SODIUM CHLORIDE [Concomitant]
     Dates: start: 20210301, end: 20210302
  92. CIMETIDINE [Concomitant]
     Active Substance: CIMETIDINE
     Dates: start: 20210304, end: 20210307
  93. RECOMBINANT HUMAN INTERLEUKIN?11 [Concomitant]
     Active Substance: OPRELVEKIN
     Dates: start: 20210304, end: 20210304
  94. ALANYL GLUTAMINE [Concomitant]
     Active Substance: ALANYL GLUTAMINE
     Dates: start: 20210311, end: 20210323
  95. CYMEVENE [Concomitant]
     Active Substance: GANCICLOVIR
     Dates: start: 20210317, end: 20210322
  96. WATER?SOLUBLE VITAMIN [Concomitant]
     Active Substance: VITAMINS
     Dates: start: 20210306, end: 20210323
  97. METHYLPREDNISOLONE. [Concomitant]
     Active Substance: METHYLPREDNISOLONE
     Dates: start: 20210725, end: 20210801

REACTIONS (3)
  - Immune-mediated enterocolitis [Not Recovered/Not Resolved]
  - Pneumonia [Recovered/Resolved]
  - Haemoptysis [Recovered/Resolved]

NARRATIVE: CASE EVENT DATE: 20201228
